FAERS Safety Report 5068568-2 (Version None)
Quarter: 2006Q3

REPORT INFORMATION
  Report Type: 
  Country: None (occurrence: None)
  Receive Date: 20060802
  Receipt Date: 20051206
  Transmission Date: 20061208
  Serious: No
  Sender: FDA-Public Use
  Company Number: US-BRISTOL-MYERS SQUIBB COMPANY-13205356

PATIENT
  Age: 87 Year
  Sex: Female
  Weight: 81 kg

DRUGS (5)
  1. COUMADIN [Suspect]
     Indication: ATRIAL FIBRILLATION
     Dosage: 5 MILLIGRAMS DAILY FOR FIVE DAYS AND 2.5 MILLIGRAMS DAILY FOR TWO DAYS/WEEKLY.
  2. SYNTHROID [Concomitant]
  3. HYDROCHLOROTHIAZIDE [Concomitant]
  4. CALCIUM GLUCONATE [Concomitant]
  5. EYEVITE [Concomitant]

REACTIONS (1)
  - WEIGHT LOSS POOR [None]
